FAERS Safety Report 4970330-3 (Version None)
Quarter: 2006Q2

REPORT INFORMATION
  Report Type: 
  Country: None (occurrence: None)
  Receive Date: 20060406
  Receipt Date: 20060324
  Transmission Date: 20061013
  Serious: Yes (Other)
  Sender: FDA-Public Use
  Company Number: US200602003813

PATIENT
  Age: 53 Year
  Sex: Female
  Weight: 119.3 kg

DRUGS (5)
  1. CYMBALTA [Suspect]
     Indication: DEPRESSION
     Dosage: SEE IMAGE
     Route: 048
     Dates: start: 20051004, end: 20060227
  2. CYMBALTA [Suspect]
     Indication: DEPRESSION
     Dosage: SEE IMAGE
     Route: 048
     Dates: start: 20060201
  3. ASA TABS (ACETYLSALICYLIC ACID) [Concomitant]
  4. ACE INHIBITOR NOS [Concomitant]
  5. ORAL BLOOD GLUCOSE LOWERING DRUGS [Concomitant]

REACTIONS (5)
  - ALANINE AMINOTRANSFERASE INCREASED [None]
  - ASPARTATE AMINOTRANSFERASE INCREASED [None]
  - HEPATIC CYST [None]
  - PYREXIA [None]
  - RASH [None]
